FAERS Safety Report 8206826-0 (Version None)
Quarter: 2012Q1

REPORT INFORMATION
  Report Type: 
  Country: None (occurrence: None)
  Receive Date: 20120312
  Receipt Date: 20120229
  Transmission Date: 20120608
  Serious: Yes (Disabling)
  Sender: FDA-Public Use
  Company Number: 2012P1008599

PATIENT
  Sex: Female

DRUGS (1)
  1. DEXTROAMPHETAMINE SACCHARATE, SUFATE/AMPHETAMINE ASPARTATE, SULFATE [Suspect]
     Dosage: 30 MG; BID  30 MG; BID
     Dates: end: 20110901

REACTIONS (1)
  - DRUG EFFECT DECREASED [None]
